FAERS Safety Report 14121461 (Version 1)
Quarter: 2017Q4

REPORT INFORMATION
  Report Type: Spontaneous
  Country: US (occurrence: US)
  Receive Date: 20171024
  Receipt Date: 20171024
  Transmission Date: 20180321
  Serious: No
  Sender: FDA-Public Use
  Company Number: US-PFIZER INC-2017452934

PATIENT
  Age: 46 Year
  Sex: Female
  Weight: 74 kg

DRUGS (1)
  1. PREMARIN [Suspect]
     Active Substance: ESTROGENS, CONJUGATED
     Indication: ECZEMA
     Dosage: APPLY DAILY TO CLEAN AREA DRY AREA. ALLOW 4 MINUTES TO DRY. USE FOR 5 DAYS
     Dates: start: 20170913

REACTIONS (14)
  - Breast pain [Unknown]
  - Pain [Unknown]
  - Breast tenderness [Unknown]
  - Menorrhagia [Unknown]
  - Dysmenorrhoea [Unknown]
  - Bacterial vulvovaginitis [Recovering/Resolving]
  - Muscle spasms [Unknown]
  - Dizziness [Unknown]
  - Back pain [Unknown]
  - Dry mouth [Unknown]
  - Product use in unapproved indication [Unknown]
  - Alopecia [Unknown]
  - Breast discharge [Unknown]
  - Decreased appetite [Unknown]

NARRATIVE: CASE EVENT DATE: 20170913
